FAERS Safety Report 15556526 (Version 1)
Quarter: 2018Q4

REPORT INFORMATION
  Report Type: Report from Study
  Country: IT (occurrence: IT)
  Receive Date: 20181026
  Receipt Date: 20181026
  Transmission Date: 20190205
  Serious: Yes (Hospitalization, Other)
  Sender: FDA-Public Use
  Company Number: IT-PFIZER INC-2018432439

PATIENT
  Age: 17 Year
  Sex: Male

DRUGS (2)
  1. HALCION [Suspect]
     Active Substance: TRIAZOLAM
     Indication: SUICIDE ATTEMPT
     Dosage: 1 DF, 1X/DAY
     Route: 048
  2. STILNOX [Suspect]
     Active Substance: ZOLPIDEM TARTRATE
     Indication: SUICIDE ATTEMPT
     Dosage: 1 DF, 1X/DAY
     Route: 048

REACTIONS (3)
  - Sopor [Recovered/Resolved]
  - Suicide attempt [Recovered/Resolved]
  - Intentional overdose [Recovered/Resolved]

NARRATIVE: CASE EVENT DATE: 20181008
